FAERS Safety Report 8578580-4 (Version None)
Quarter: 2012Q3

REPORT INFORMATION
  Report Type: 
  Country: None (occurrence: None)
  Receive Date: 20120808
  Receipt Date: 20120730
  Transmission Date: 20120928
  Serious: Yes (Death)
  Sender: FDA-Public Use
  Company Number: JP-BAYER-2012-049257

PATIENT
  Age: 65 Year
  Sex: Male
  Weight: 73 kg

DRUGS (6)
  1. NEXAVAR [Suspect]
     Dosage: 400 MG, DAILY
     Route: 048
     Dates: start: 20120412, end: 20120515
  2. CLARITIN [Concomitant]
     Dosage: DAILY DOSE 10 MG
     Route: 048
     Dates: start: 20090123, end: 20120606
  3. NEXAVAR [Suspect]
     Indication: HEPATIC NEOPLASM MALIGNANT
     Dosage: 800 MG,DAILY
     Route: 048
     Dates: start: 20120306, end: 20120411
  4. LASIX [Concomitant]
     Dosage: DAILY DOSE 20 MG
     Route: 048
     Dates: start: 20090123, end: 20120606
  5. SPIRONOLACTONE [Concomitant]
     Dosage: DAILY DOSE 25 MG
     Route: 048
     Dates: start: 20090123, end: 20120606
  6. LIVACT [Concomitant]
     Dosage: DAILY DOSE 12.45 G
     Route: 048
     Dates: start: 20090123, end: 20120606

REACTIONS (2)
  - LIVER DISORDER [None]
  - HEPATIC FAILURE [None]
